FAERS Safety Report 7744438-3 (Version None)
Quarter: 2011Q3

REPORT INFORMATION
  Report Type: 
  Country: None (occurrence: None)
  Receive Date: 20110912
  Receipt Date: 20110907
  Transmission Date: 20111222
  Serious: Yes (Hospitalization, Other)
  Sender: FDA-Public Use
  Company Number: US-PFIZER INC-2011210132

PATIENT
  Sex: Female
  Weight: 89.796 kg

DRUGS (5)
  1. LYRICA [Suspect]
     Indication: PAIN
     Dosage: 50 MG, TWO CAPSULES 1X/DAY
     Route: 048
     Dates: start: 20090101
  2. LEVOTHYROXINE [Concomitant]
     Indication: THYROID DISORDER
     Dosage: 0.088 MG
  3. PRISTIQ [Suspect]
     Indication: PAIN
     Dosage: 50 MG, 1X/DAY
     Route: 048
     Dates: start: 20090101
  4. LYRICA [Suspect]
     Indication: NERVE INJURY
  5. PRISTIQ [Suspect]
     Indication: NERVE INJURY

REACTIONS (2)
  - CONVULSION [None]
  - DEHYDRATION [None]
